FAERS Safety Report 9103539 (Version 1)
Quarter: 2013Q1

REPORT INFORMATION
  Report Type: Spontaneous
  Country: US (occurrence: US)
  Receive Date: 20130218
  Receipt Date: 20130218
  Transmission Date: 20140127
  Serious: Yes (Other)
  Sender: FDA-Public Use
  Company Number: US-GLAXOSMITHKLINE-A1012430A

PATIENT
  Sex: Female
  Weight: 110.9 kg

DRUGS (4)
  1. ADVAIR [Suspect]
     Indication: NASOPHARYNGITIS
     Route: 065
  2. SYNTHROID [Concomitant]
  3. SINGULAIR [Concomitant]
  4. ALEVE [Concomitant]

REACTIONS (5)
  - Diabetes mellitus [Unknown]
  - Blood glucose increased [Unknown]
  - Mental disorder [Unknown]
  - Dizziness [Unknown]
  - Drug ineffective [Unknown]
